FAERS Safety Report 25753410 (Version 1)
Quarter: 2025Q3

REPORT INFORMATION
  Report Type: Spontaneous
  Country: GB (occurrence: GB)
  Receive Date: 20250903
  Receipt Date: 20250903
  Transmission Date: 20251021
  Serious: Yes (Life-Threatening, Other)
  Sender: TEVA
  Company Number: None

PATIENT
  Age: 38 Year
  Sex: Female
  Weight: 97 kg

DRUGS (2)
  1. LEVOTHYROXINE [Suspect]
     Active Substance: LEVOTHYROXINE
     Indication: Radiation hypothyroidism
     Dosage: DAILY DOSAGE: 25UG
     Route: 065
     Dates: start: 20250808, end: 20250825
  2. LIOTHYRONINE [Suspect]
     Active Substance: LIOTHYRONINE
     Indication: Product used for unknown indication
     Route: 065

REACTIONS (26)
  - Pyrexia [Not Recovered/Not Resolved]
  - Presyncope [Not Recovered/Not Resolved]
  - Chest pain [Not Recovered/Not Resolved]
  - Menstruation irregular [Not Recovered/Not Resolved]
  - Respiratory rate increased [Recovered/Resolved]
  - Brain oedema [Recovered/Resolved]
  - Tinnitus [Not Recovered/Not Resolved]
  - Nausea [Not Recovered/Not Resolved]
  - Neck pain [Not Recovered/Not Resolved]
  - Oropharyngeal pain [Recovering/Resolving]
  - Eye pain [Not Recovered/Not Resolved]
  - Wheezing [Not Recovered/Not Resolved]
  - Inflammation [Recovered/Resolved]
  - Depression [Not Recovered/Not Resolved]
  - Muscle tightness [Not Recovered/Not Resolved]
  - Fatigue [Not Recovered/Not Resolved]
  - Paraesthesia [Recovering/Resolving]
  - Influenza [Recovering/Resolving]
  - Dizziness [Not Recovered/Not Resolved]
  - Gait disturbance [Recovering/Resolving]
  - Spinal pain [Recovered/Resolved]
  - Hyperhidrosis [Not Recovered/Not Resolved]
  - Sleep disorder [Not Recovered/Not Resolved]
  - Hypomania [Not Recovered/Not Resolved]
  - Tinnitus [Not Recovered/Not Resolved]
  - Dysgeusia [Not Recovered/Not Resolved]
